FAERS Safety Report 9903179 (Version 1)
Quarter: 2014Q1

REPORT INFORMATION
  Report Type: Spontaneous
  Country: FR (occurrence: FR)
  Receive Date: 20140217
  Receipt Date: 20140217
  Transmission Date: 20141002
  Serious: Yes (Hospitalization)
  Sender: FDA-Public Use
  Company Number: PHHY2014FR015631

PATIENT
  Age: 66 Year
  Sex: Male

DRUGS (15)
  1. ESIDREX [Suspect]
     Indication: HYPERTENSION
     Dosage: 0.5 DF (25 MG), QD
     Route: 048
     Dates: end: 201311
  2. GLIMEPIRIDE [Suspect]
     Indication: TYPE 2 DIABETES MELLITUS
     Dosage: 4 MG, QD
     Route: 048
     Dates: end: 201311
  3. LANSOPRAZOLE [Suspect]
     Dosage: UNK UKN, UNK
     Route: 048
     Dates: end: 201311
  4. METFORMIN [Suspect]
     Indication: TYPE 2 DIABETES MELLITUS
     Dosage: 1000 MG, BID
     Route: 048
  5. METFORMIN [Suspect]
     Dosage: 500 MG, BID
  6. KARDEGIC [Concomitant]
     Dosage: 75 MG, UNK
     Route: 048
  7. TWYNSTA [Concomitant]
     Dosage: 8 MG, UNK
  8. ATORVASTATIN [Concomitant]
     Dosage: 20 MG, UNK
     Route: 048
  9. EUPRESSYL [Concomitant]
     Dosage: 60 MG, UNK
  10. RILMENIDINE [Concomitant]
     Dosage: 10 MG, UNK
  11. LEVOTHYROX [Concomitant]
     Dosage: 25 UG, UNK
  12. ZOLPIDEM [Concomitant]
     Dosage: 5 MG, UNK
  13. SECTRAL LP [Concomitant]
     Dosage: 500 MG, UNK
  14. TERALHITE [Concomitant]
     Dosage: 400 MG, UNK
  15. MIANSERINE [Concomitant]

REACTIONS (1)
  - Coombs positive haemolytic anaemia [Recovered/Resolved]
